FAERS Safety Report 17733979 (Version 1)
Quarter: 2020Q2

REPORT INFORMATION
  Report Type: Spontaneous
  Country: US (occurrence: US)
  Receive Date: 20200501
  Receipt Date: 20200501
  Transmission Date: 20200714
  Serious: Yes (Hospitalization)
  Sender: FDA-Public Use
  Company Number: None

PATIENT
  Age: 52 Year
  Sex: Female

DRUGS (5)
  1. VENTOLIN HFA AER [Concomitant]
  2. CBD OIL [Suspect]
     Active Substance: CANNABIDIOL\HERBALS
  3. CAPECITABINE. [Suspect]
     Active Substance: CAPECITABINE
     Indication: BREAST CANCER FEMALE
     Route: 048
     Dates: start: 20190928
  4. ALBUTEROL AER HFA [Concomitant]
  5. ENTECAVIR TAB 0.5 MG [Concomitant]

REACTIONS (7)
  - Ulcer [None]
  - White blood cell count decreased [None]
  - Inflammation [None]
  - Vomiting [None]
  - Cough [None]
  - Dry mouth [None]
  - Dysphonia [None]

NARRATIVE: CASE EVENT DATE: 20200409
